FAERS Safety Report 11273896 (Version 1)
Quarter: 2015Q3

REPORT INFORMATION
  Report Type: Spontaneous
  Country: SE (occurrence: SE)
  Receive Date: 20150715
  Receipt Date: 20150715
  Transmission Date: 20151125
  Serious: Yes (Hospitalization)
  Sender: FDA-Public Use
  Company Number: SE-TEVA-578231ISR

PATIENT
  Age: 53 Year
  Sex: Male

DRUGS (3)
  1. AZILECT [Suspect]
     Active Substance: RASAGILINE MESYLATE
     Route: 048
  2. MIANSERIN 10 MG FILM-COATED TABLET PER ORAL [Suspect]
     Active Substance: MIANSERIN
     Route: 048
  3. VENLAFAXINE [Suspect]
     Active Substance: VENLAFAXINE HYDROCHLORIDE
     Route: 048

REACTIONS (2)
  - Rapid eye movements sleep abnormal [Recovered/Resolved]
  - Parasomnia [Recovered/Resolved]
